FAERS Safety Report 11857767 (Version 1)
Quarter: 2015Q4

REPORT INFORMATION
  Report Type: Spontaneous
  Country: US (occurrence: None)
  Receive Date: 20151221
  Receipt Date: 20151221
  Transmission Date: 20160305
  Serious: Yes (Disabling, Other)
  Sender: FDA-Public Use
  Company Number: None

PATIENT
  Age: 62 Year
  Sex: Female
  Weight: 88 kg

DRUGS (1)
  1. TOPAMAX [Suspect]
     Active Substance: TOPIRAMATE
     Indication: MIGRAINE
     Route: 048
     Dates: start: 20150911, end: 20151220

REACTIONS (8)
  - Decreased interest [None]
  - Headache [None]
  - Aggression [None]
  - Antisocial behaviour [None]
  - Mood swings [None]
  - Anger [None]
  - Vision blurred [None]
  - Personality change [None]

NARRATIVE: CASE EVENT DATE: 20151201
